FAERS Safety Report 4462264-8 (Version None)
Quarter: 2004Q3

REPORT INFORMATION
  Report Type: 
  Country: None (occurrence: None)
  Receive Date: 20040929
  Receipt Date: 20040824
  Transmission Date: 20050211
  Serious: Yes (Congenital Anomaly)
  Sender: FDA-Public Use
  Company Number: JP-GLAXOSMITHKLINE-B0344392A

PATIENT
  Age: 21 Year
  Sex: Female

DRUGS (8)
  1. PAROXETINE HCL [Suspect]
     Indication: HYPERVENTILATION
     Route: 048
     Dates: start: 20040716
  2. TEPRENONE [Concomitant]
     Dosage: 150MG PER DAY
     Route: 048
     Dates: start: 20040731
  3. CHINESE MEDICINE [Concomitant]
     Indication: ANXIETY
     Dosage: 7.5G PER DAY
     Route: 048
     Dates: start: 20040731, end: 20040829
  4. MAGNESIUM OXIDE [Concomitant]
     Indication: CONSTIPATION
     Dosage: 1.998G PER DAY
     Route: 048
     Dates: start: 20040803, end: 20040829
  5. LACTOMIN [Concomitant]
     Indication: GASTROENTERITIS
     Dosage: 3G PER DAY
     Route: 048
     Dates: start: 20040807, end: 20040816
  6. POVIDONE IODINE [Concomitant]
     Indication: PHARYNGITIS
     Dates: start: 20040815, end: 20040815
  7. DICLOFENAC SODIUM [Concomitant]
     Dosage: 25MG PER DAY
     Route: 054
     Dates: start: 20040830
  8. SODIUM PICOSULFATE [Concomitant]
     Indication: CONSTIPATION
     Dosage: 75MG PER DAY
     Route: 048
     Dates: start: 20040726

REACTIONS (2)
  - DRUG EXPOSURE DURING PREGNANCY [None]
  - PREMATURE LABOUR [None]
